FAERS Safety Report 6484630-1 (Version None)
Quarter: 2009Q4

REPORT INFORMATION
  Report Type: 
  Country: None (occurrence: None)
  Receive Date: 20091209
  Receipt Date: 20091201
  Transmission Date: 20100525
  Serious: Yes (Hospitalization)
  Sender: FDA-Public Use
  Company Number: US-ABBOTT-09P-163-0611514-00

PATIENT
  Sex: Female
  Weight: 59.02 kg

DRUGS (8)
  1. HUMIRA [Suspect]
     Indication: RHEUMATOID ARTHRITIS
     Dates: start: 20070101, end: 20091120
  2. HUMIRA [Suspect]
  3. PREDNISONE [Concomitant]
     Indication: RHEUMATOID ARTHRITIS
     Dates: start: 20070101
  4. METHOTREXATE [Concomitant]
     Indication: RHEUMATOID ARTHRITIS
     Dates: start: 20080101
  5. FOLIC ACID [Concomitant]
     Indication: ANAEMIA
  6. LOVAZA [Concomitant]
     Indication: DRUG USE FOR UNKNOWN INDICATION
  7. IRON PILLS [Concomitant]
     Indication: ANAEMIA
  8. ADALAT [Concomitant]
     Indication: HYPERTENSION

REACTIONS (3)
  - MENORRHAGIA [None]
  - RED BLOOD CELL COUNT DECREASED [None]
  - UTERINE LEIOMYOMA [None]
